FAERS Safety Report 24018581 (Version 1)
Quarter: 2024Q2

REPORT INFORMATION
  Report Type: Spontaneous
  Country: BR (occurrence: BR)
  Receive Date: 20240627
  Receipt Date: 20240627
  Transmission Date: 20240716
  Serious: Yes (Other)
  Sender: FDA-Public Use
  Company Number: BR-BEH-2024173973

PATIENT
  Age: 41 Year
  Sex: Female

DRUGS (2)
  1. HIZENTRA [Suspect]
     Active Substance: HUMAN IMMUNOGLOBULIN G
     Dosage: UNK UNK, QW
     Route: 058
     Dates: start: 202310
  2. SILTUXIMAB [Concomitant]
     Active Substance: SILTUXIMAB

REACTIONS (1)
  - Amaurosis fugax [Unknown]
